FAERS Safety Report 6753065-6 (Version None)
Quarter: 2010Q2

REPORT INFORMATION
  Report Type: 
  Country: None (occurrence: None)
  Receive Date: 20100603
  Receipt Date: 20100520
  Transmission Date: 20101027
  Serious: No
  Sender: FDA-Public Use
  Company Number: PHHY2010DE26191

PATIENT
  Sex: Male
  Weight: 96 kg

DRUGS (6)
  1. EXFORGE [Suspect]
     Indication: HYPERTENSION
     Dosage: UNK
     Route: 048
     Dates: start: 20090430
  2. ENALAPRIL MALEATE [Concomitant]
     Dosage: 40 MG, QD
  3. MOXONIDINE [Concomitant]
     Dosage: 0.4 MG, QD
  4. HYDROCHLOROTHIAZIDE [Concomitant]
     Dosage: 25 MG, QD
  5. EBRANTIL [Concomitant]
     Dosage: 30 MG, QD
  6. BISOPROLOL [Concomitant]
     Dosage: 5 MG, QD

REACTIONS (1)
  - DIABETES MELLITUS [None]
